FAERS Safety Report 25438751 (Version 1)
Quarter: 2025Q2

REPORT INFORMATION
  Report Type: Spontaneous
  Country: FR (occurrence: FR)
  Receive Date: 20250616
  Receipt Date: 20250616
  Transmission Date: 20250717
  Serious: Yes (Other)
  Sender: AUROBINDO
  Company Number: FR-AFSSAPS-MA2025000603

PATIENT
  Age: 50 Year
  Sex: Male

DRUGS (6)
  1. EZETIMIBE [Interacting]
     Active Substance: EZETIMIBE
     Indication: Hypertriglyceridaemia
     Route: 048
     Dates: start: 202412, end: 20250305
  2. EZETIMIBE [Interacting]
     Active Substance: EZETIMIBE
     Route: 048
     Dates: start: 20250402, end: 20250509
  3. SELPERCATINIB [Interacting]
     Active Substance: SELPERCATINIB
     Indication: Thyroid cancer
     Route: 048
     Dates: start: 2022, end: 202412
  4. SELPERCATINIB [Interacting]
     Active Substance: SELPERCATINIB
     Route: 048
     Dates: start: 202412, end: 20241209
  5. SELPERCATINIB [Interacting]
     Active Substance: SELPERCATINIB
     Route: 048
     Dates: start: 20241223, end: 20250117
  6. SELPERCATINIB [Interacting]
     Active Substance: SELPERCATINIB
     Route: 048
     Dates: start: 20250217

REACTIONS (1)
  - Hepatic cytolysis [Recovering/Resolving]

NARRATIVE: CASE EVENT DATE: 20241206
